FAERS Safety Report 21725789 (Version 1)
Quarter: 2022Q4

REPORT INFORMATION
  Report Type: Spontaneous
  Country: US (occurrence: US)
  Receive Date: 20221214
  Receipt Date: 20221214
  Transmission Date: 20230112
  Serious: Yes (Hospitalization, Other)
  Sender: FDA-Public Use
  Company Number: US-NATCOUSA-2022-NATCOUSA-000096

PATIENT
  Age: 81 Year
  Sex: Male

DRUGS (1)
  1. IMATINIB MESYLATE [Suspect]
     Active Substance: IMATINIB MESYLATE
     Indication: Gastrointestinal stromal tumour

REACTIONS (2)
  - Gastrointestinal stromal tumour [Recovered/Resolved]
  - Disease recurrence [Recovered/Resolved]
